FAERS Safety Report 17360966 (Version 1)
Quarter: 2020Q1

REPORT INFORMATION
  Report Type: Spontaneous
  Country: US (occurrence: US)
  Receive Date: 20200117
  Receipt Date: 20200117
  Transmission Date: 20200409
  Serious: Yes (Hospitalization)
  Sender: FDA-Public Use
  Company Number: None

PATIENT
  Age: 64 Year
  Sex: Female

DRUGS (10)
  1. CRANBERRY. [Concomitant]
     Active Substance: CRANBERRY
  2. ARICEPT [Concomitant]
     Active Substance: DONEPEZIL HYDROCHLORIDE
  3. TURMERIC [Concomitant]
     Active Substance: HERBALS\TURMERIC
  4. AMLODIPINE [Concomitant]
     Active Substance: AMLODIPINE BESYLATE
  5. VITAMIN D3 [Concomitant]
     Active Substance: CHOLECALCIFEROL
  6. B COMP [Concomitant]
  7. VITAMIN C [Concomitant]
     Active Substance: ASCORBIC ACID
  8. CAPECITABINE. [Suspect]
     Active Substance: CAPECITABINE
     Indication: COLON CANCER
     Route: 048
     Dates: start: 20190328, end: 202001
  9. BACLOFEN. [Concomitant]
     Active Substance: BACLOFEN
  10. ASPIRIN. [Concomitant]
     Active Substance: ASPIRIN

REACTIONS (2)
  - Bladder operation [None]
  - Malignant neoplasm progression [None]

NARRATIVE: CASE EVENT DATE: 20200114
